FAERS Safety Report 6802298 (Version 9)
Quarter: 2018Q4

REPORT INFORMATION
  Report Type: Spontaneous
  Country: DK (occurrence: DK)
  Receive Date: 20081103
  Receipt Date: 20181218
  Transmission Date: 20190205
  Serious: Yes (Disabling, Other)
  Sender: FDA-Public Use
  Company Number: DK-BAYER-200829072GPV

PATIENT
  Age: 55 Year
  Sex: Female

DRUGS (13)
  1. METOCLOPRAMID [Concomitant]
     Active Substance: METOCLOPRAMIDE
  2. REMERON [Concomitant]
     Active Substance: MIRTAZAPINE
  3. GADOLINIUM ZEOLITE [Suspect]
     Active Substance: GADOLINIUM ZEOLITE
     Indication: NUCLEAR MAGNETIC RESONANCE IMAGING
     Route: 065
     Dates: start: 20020719, end: 20020719
  4. EMPERAL [Concomitant]
     Active Substance: METOCLOPRAMIDE HYDROCHLORIDE
     Route: 048
  5. MAGNEVIST [Suspect]
     Active Substance: GADOPENTETATE DIMEGLUMINE
     Indication: NUCLEAR MAGNETIC RESONANCE IMAGING
  6. OMNISCAN [Suspect]
     Active Substance: GADODIAMIDE
     Indication: SCAN WITH CONTRAST
     Dosage: 0.5 MMOL/ML
     Route: 042
     Dates: start: 20020115, end: 20020115
  7. KININ [Concomitant]
     Active Substance: QUININE HYDROCHLORIDE
  8. EMPERAL [Concomitant]
     Active Substance: METOCLOPRAMIDE HYDROCHLORIDE
  9. MAGNEVIST [Suspect]
     Active Substance: GADOPENTETATE DIMEGLUMINE
     Indication: NUCLEAR MAGNETIC RESONANCE IMAGING BRAIN
     Route: 042
     Dates: start: 20060626, end: 20060626
  10. MAGNEVIST [Suspect]
     Active Substance: GADOPENTETATE DIMEGLUMINE
     Indication: PRODUCT USED FOR UNKNOWN INDICATION
  11. LACTULOSE. [Concomitant]
     Active Substance: LACTULOSE
  12. SERENACE [Concomitant]
     Active Substance: HALOPERIDOL
  13. EMPERAL [Concomitant]
     Active Substance: METOCLOPRAMIDE HYDROCHLORIDE
     Route: 048

REACTIONS (11)
  - Pain of skin [Not Recovered/Not Resolved]
  - Skin hypertrophy [Not Recovered/Not Resolved]
  - Gait inability [Not Recovered/Not Resolved]
  - Wheelchair user [Not Recovered/Not Resolved]
  - Abdominal pain [Not Recovered/Not Resolved]
  - Onychomycosis [Not Recovered/Not Resolved]
  - Ulcer [Not Recovered/Not Resolved]
  - Nephrogenic systemic fibrosis [Not Recovered/Not Resolved]
  - Arthralgia [Not Recovered/Not Resolved]
  - Oedema peripheral [Not Recovered/Not Resolved]
  - Muscle atrophy [Not Recovered/Not Resolved]

NARRATIVE: CASE EVENT DATE: 200207
